FAERS Safety Report 10412748 (Version 1)
Quarter: 2014Q2

REPORT INFORMATION
  Report Type: Spontaneous
  Country: US (occurrence: None)
  Receive Date: 20140604
  Receipt Date: 20140604
  Transmission Date: 20141212
  Serious: No
  Sender: FDA-Public Use
  Company Number: 163-POMAL-14050142

PATIENT
  Age: 55 Year
  Sex: Female
  Weight: 79.38 kg

DRUGS (10)
  1. POMALYST [Suspect]
     Indication: PLASMA CELL MYELOMA
     Route: 048
     Dates: start: 20131202
  2. ADVIL (IBUPROFEN) [Concomitant]
  3. ANASTROZOLE [Concomitant]
  4. CALCIUM 500 + VITAMIN D (LEKOVIT CA) [Concomitant]
  5. COROMEGA (FISH OIL) [Concomitant]
  6. SIMVASTATIN [Concomitant]
  7. VITAMIN D (ERGOCALCIFEROL) [Concomitant]
  8. VITAMIN E (TOCOPHEROL) [Concomitant]
  9. METFORMIN HCL (METFORMIN HYDROCHLORIDE) [Concomitant]
  10. ZOMETA (ZOLEDRONIC ACID) [Concomitant]

REACTIONS (1)
  - Fungal infection [None]
